FAERS Safety Report 17946108 (Version 1)
Quarter: 2020Q2

REPORT INFORMATION
  Report Type: Spontaneous
  Country: RU (occurrence: RU)
  Receive Date: 20200626
  Receipt Date: 20200626
  Transmission Date: 20200714
  Serious: Yes (Other)
  Sender: FDA-Public Use
  Company Number: RU-TEVA-2020-RU-1791337

PATIENT
  Age: 31 Year
  Sex: Male

DRUGS (1)
  1. SALBUTAMOL-TEVA [Suspect]
     Active Substance: ALBUTEROL
     Indication: ASTHMA
     Dosage: DAILY USE OF THE DRUG, A SPRAY IS ENOUGH FROM A WEEK TO TWO, TWO TO FOUR BREATHS PER RECEPTION
     Route: 065
     Dates: start: 2017

REACTIONS (4)
  - Drug interaction [Recovered/Resolved with Sequelae]
  - General physical health deterioration [Not Recovered/Not Resolved]
  - Hypoxia [Not Recovered/Not Resolved]
  - Dizziness [Not Recovered/Not Resolved]
